FAERS Safety Report 15121786 (Version 1)
Quarter: 2018Q3

REPORT INFORMATION
  Report Type: Spontaneous
  Country: US (occurrence: US)
  Receive Date: 20180709
  Receipt Date: 20180709
  Transmission Date: 20181010
  Serious: No
  Sender: FDA-Public Use
  Company Number: US-MYLANLABS-2018M1046041

PATIENT
  Sex: Male
  Weight: 85 kg

DRUGS (1)
  1. LIDOCAINE PATCH [Suspect]
     Active Substance: LIDOCAINE
     Indication: INTERVERTEBRAL DISC DISORDER
     Dosage: UNK, NO MORE THAN 3 PATCHES DAILY AND KEEP THEM ON FOR 12 HOURS, AND OFF FOR 12 HOURS
     Route: 003

REACTIONS (4)
  - Off label use [Unknown]
  - Product quality issue [Unknown]
  - Product adhesion issue [Unknown]
  - No adverse event [Unknown]
